FAERS Safety Report 14902857 (Version 2)
Quarter: 2019Q2

REPORT INFORMATION
  Report Type: Spontaneous
  Country: US (occurrence: US)
  Receive Date: 20180516
  Receipt Date: 20190611
  Transmission Date: 20190711
  Serious: No
  Sender: FDA-Public Use
  Company Number: US-SA-2017SA107413

PATIENT
  Sex: Female

DRUGS (3)
  1. METFORMIN [Concomitant]
     Active Substance: METFORMIN HYDROCHLORIDE
  2. GLIPERIDE [Concomitant]
     Active Substance: GLIMEPIRIDE
     Route: 065
  3. LANTUS SOLOSTAR [Suspect]
     Active Substance: INSULIN GLARGINE
     Indication: DIABETES MELLITUS
     Dosage: 10 MG,UNK
     Route: 051
     Dates: start: 201703

REACTIONS (4)
  - Product storage error [Unknown]
  - Blood glucose increased [Unknown]
  - Product use issue [Unknown]
  - Injection site pain [Unknown]
